FAERS Safety Report 14699710 (Version 2)
Quarter: 2018Q2

REPORT INFORMATION
  Report Type: Spontaneous
  Country: GB (occurrence: GB)
  Receive Date: 20180330
  Receipt Date: 20180405
  Transmission Date: 20180711
  Serious: Yes (Other)
  Sender: FDA-Public Use
  Company Number: GB-BRISTOL-MYERS SQUIBB COMPANY-BMS-2018-026470

PATIENT
  Age: 75 Year
  Sex: Female

DRUGS (5)
  1. HYDREA [Suspect]
     Active Substance: HYDROXYUREA
     Indication: AORTITIS
     Route: 065
  2. HYDREA [Suspect]
     Active Substance: HYDROXYUREA
     Indication: LEUKAEMIA
     Dosage: 2 G, QD
     Route: 065
  3. CYCLOPHOSPHAMIDE. [Suspect]
     Active Substance: CYCLOPHOSPHAMIDE
     Indication: AORTITIS
     Dosage: UNK
     Route: 065
  4. PREDNISOLONE. [Suspect]
     Active Substance: PREDNISOLONE
     Indication: AORTITIS
     Dosage: UNK
     Route: 065
  5. MYCOPHENOLATE MOFETIL. [Suspect]
     Active Substance: MYCOPHENOLATE MOFETIL
     Indication: AORTITIS
     Dosage: 1 G, UNK
     Route: 065

REACTIONS (5)
  - Aortitis [Not Recovered/Not Resolved]
  - Neutrophilia [Not Recovered/Not Resolved]
  - Vasculitis [Not Recovered/Not Resolved]
  - Splenomegaly [Not Recovered/Not Resolved]
  - Rheumatoid arthritis [Not Recovered/Not Resolved]
